FAERS Safety Report 6987181-0 (Version None)
Quarter: 2010Q3

REPORT INFORMATION
  Report Type: 
  Country: None (occurrence: None)
  Receive Date: 20100916
  Receipt Date: 20100903
  Transmission Date: 20110219
  Serious: Yes (Other)
  Sender: FDA-Public Use
  Company Number: US-PFIZER INC-2010112377

PATIENT
  Sex: Female
  Weight: 44.898 kg

DRUGS (3)
  1. CHANTIX [Suspect]
     Indication: SMOKING CESSATION THERAPY
     Dosage: 1 MG, 2X/DAY
     Route: 048
     Dates: start: 20100817, end: 20100826
  2. LEVOTHYROXINE [Concomitant]
     Indication: THYROID DISORDER
     Dosage: UNK
  3. VICODIN [Concomitant]
     Indication: BACK PAIN
     Dosage: UNK

REACTIONS (3)
  - DEPRESSION [None]
  - NERVOUSNESS [None]
  - SLEEP DISORDER [None]
